FAERS Safety Report 8342034 (Version 26)
Quarter: 2016Q4

REPORT INFORMATION
  Report Type: Spontaneous
  Country: US (occurrence: US)
  Receive Date: 20120118
  Receipt Date: 20161003
  Transmission Date: 20170207
  Serious: Yes (Hospitalization, Other)
  Sender: FDA-Public Use
  Company Number: US-GLAXOSMITHKLINE-A0961811A

PATIENT
  Age: 12 Year
  Sex: Female
  Weight: 37 kg

DRUGS (25)
  1. FLOLAN [Suspect]
     Active Substance: EPOPROSTENOL SODIUM
     Indication: PULMONARY HYPERTENSION
     Dosage: UNK
     Dates: start: 20080617
  2. FLOLAN [Suspect]
     Active Substance: EPOPROSTENOL SODIUM
     Indication: PULMONARY HYPERTENSION
     Dosage: UNK
     Dates: start: 20080617
  3. FLOLAN [Suspect]
     Active Substance: EPOPROSTENOL SODIUM
     Dosage: 66 DF, CO
  4. FLOLAN [Suspect]
     Active Substance: EPOPROSTENOL SODIUM
     Dosage: 66 NG/KG/MIN, CO
     Dates: start: 20080616
  5. FLOLAN [Suspect]
     Active Substance: EPOPROSTENOL SODIUM
     Indication: SICKLE CELL ANAEMIA
     Dosage: UNK
     Dates: start: 20080617
  6. FLOLAN [Suspect]
     Active Substance: EPOPROSTENOL SODIUM
     Indication: COR PULMONALE CHRONIC
     Dosage: UNK
     Dates: start: 20080617
  7. FLOLAN [Suspect]
     Active Substance: EPOPROSTENOL SODIUM
     Dosage: UNK
  8. FLOLAN [Suspect]
     Active Substance: EPOPROSTENOL SODIUM
     Dosage: UNK
  9. SILDENAFIL CITRATE. [Concomitant]
     Active Substance: SILDENAFIL CITRATE
  10. FLOLAN [Suspect]
     Active Substance: EPOPROSTENOL SODIUM
     Dosage: 69 NG/KG/MIN AT 45000 NG/ML CONCENTRATION 82 ML/DAY PUMP RATE 1.5 MG VIAL STRENGTH
     Route: 042
     Dates: start: 20140911
  11. FLOLAN [Suspect]
     Active Substance: EPOPROSTENOL SODIUM
     Dosage: 66 DF, CO
     Dates: start: 20080616
  12. LETAIRIS [Concomitant]
     Active Substance: AMBRISENTAN
  13. MEROPENEM. [Suspect]
     Active Substance: MEROPENEM
  14. FLOLAN [Suspect]
     Active Substance: EPOPROSTENOL SODIUM
     Dosage: UNK, CO
     Route: 042
     Dates: start: 20140911
  15. FLOLAN [Suspect]
     Active Substance: EPOPROSTENOL SODIUM
     Dosage: 66 DF, CO
     Route: 042
     Dates: start: 20080616
  16. FLOLAN [Suspect]
     Active Substance: EPOPROSTENOL SODIUM
     Indication: PULMONARY ARTERIAL HYPERTENSION
     Dosage: 65 NG/KG/MIN AT 45000 NG/ML CONCENTRATION 81 ML/DAY PUMP RATE AND 1.5 MG VIAL STRENGTH
     Route: 042
     Dates: start: 20080616
  17. FLOLAN [Suspect]
     Active Substance: EPOPROSTENOL SODIUM
     Dosage: UNK, CO
     Route: 042
     Dates: start: 20140911
  18. LETARIS [Concomitant]
     Active Substance: AMBRISENTAN
  19. ADCIRCA [Concomitant]
     Active Substance: TADALAFIL
  20. REVATIO [Concomitant]
     Active Substance: SILDENAFIL CITRATE
  21. WARFARIN [Concomitant]
     Active Substance: WARFARIN
  22. FLOLAN [Suspect]
     Active Substance: EPOPROSTENOL SODIUM
     Dosage: 66 NG/KG/MIN CONCENTRATION 45,000 NG/ML PUMP RATE 87 ML/DAY VIAL STRENGTH 1.5 MG
     Route: 042
     Dates: start: 20140911
  23. FLOLAN [Suspect]
     Active Substance: EPOPROSTENOL SODIUM
     Dosage: 66 DF, CO
     Dates: start: 20080616
  24. FLOLAN [Suspect]
     Active Substance: EPOPROSTENOL SODIUM
     Dosage: UNK, CO
     Route: 042
  25. FLOLAN [Suspect]
     Active Substance: EPOPROSTENOL SODIUM
     Indication: PULMONARY HYPERTENSION
     Dosage: UNK

REACTIONS (32)
  - Sepsis [Unknown]
  - Pyrexia [Unknown]
  - Infection [Unknown]
  - Mental impairment [Unknown]
  - Bacterial infection [Unknown]
  - Pyrexia [Unknown]
  - Coagulopathy [Unknown]
  - Streptococcal infection [Unknown]
  - Hospitalisation [Unknown]
  - Device related infection [Unknown]
  - Central venous catheter removal [Unknown]
  - Upper respiratory tract infection [Recovered/Resolved]
  - Oxygen consumption increased [Unknown]
  - Therapy cessation [Recovered/Resolved]
  - Wrong drug administered [Unknown]
  - Central venous catheterisation [Unknown]
  - Ill-defined disorder [Recovered/Resolved]
  - Slow response to stimuli [Unknown]
  - Blood culture positive [Recovered/Resolved]
  - Back pain [Not Recovered/Not Resolved]
  - Rhinovirus infection [Unknown]
  - Emergency care [Not Recovered/Not Resolved]
  - Laceration [Not Recovered/Not Resolved]
  - Product selection error [Unknown]
  - Sickle cell anaemia [Recovering/Resolving]
  - Sputum discoloured [Recovered/Resolved]
  - Chest pain [Not Recovered/Not Resolved]
  - Pneumonia [Unknown]
  - Pain [Recovered/Resolved]
  - Skin disorder [Not Recovered/Not Resolved]
  - Skin haemorrhage [Unknown]
  - Wound [Not Recovered/Not Resolved]

NARRATIVE: CASE EVENT DATE: 20120113
